FAERS Safety Report 10149357 (Version 1)
Quarter: 2014Q2

REPORT INFORMATION
  Report Type: Spontaneous
  Country: JP (occurrence: None)
  Receive Date: 20140430
  Receipt Date: 20140430
  Transmission Date: 20141212
  Serious: Yes (Hospitalization)
  Sender: FDA-Public Use
  Company Number: B0968845A

PATIENT
  Age: 33 Year
  Sex: Female

DRUGS (5)
  1. PAROXETINE HYDROCHLORIDE [Suspect]
     Indication: DYSPNOEA
     Route: 048
     Dates: start: 20131119
  2. ALPRAZOLAM [Concomitant]
  3. RITODRINE [Concomitant]
  4. IRON SALT [Concomitant]
  5. CHINESE MEDICATION [Concomitant]

REACTIONS (6)
  - Maternal exposure during pregnancy [None]
  - Postpartum haemorrhage [None]
  - Postpartum uterine subinvolution [None]
  - Anaemia [None]
  - Uterine contractions abnormal [None]
  - Gestational hypertension [None]
